FAERS Safety Report 5047924-2 (Version None)
Quarter: 2006Q3

REPORT INFORMATION
  Report Type: 
  Country: None (occurrence: None)
  Receive Date: 20060711
  Receipt Date: 20060701
  Transmission Date: 20061208
  Serious: Yes (Hospitalization, Disabling)
  Sender: FDA-Public Use
  Company Number: EG-GLAXOSMITHKLINE-B0430365A

PATIENT
  Age: 50 Year
  Sex: Female

DRUGS (1)
  1. HYCAMTIN [Suspect]
     Indication: OVARIAN CANCER
     Route: 042
     Dates: start: 20060615, end: 20060620

REACTIONS (3)
  - FATIGUE [None]
  - PYREXIA [None]
  - RENAL IMPAIRMENT [None]
